FAERS Safety Report 17824782 (Version 1)
Quarter: 2020Q2

REPORT INFORMATION
  Report Type: Spontaneous
  Country: US (occurrence: US)
  Receive Date: 20200526
  Receipt Date: 20200526
  Transmission Date: 20200714
  Serious: Yes (Death)
  Sender: FDA-Public Use
  Company Number: None

PATIENT
  Age: 89 Year
  Sex: Male

DRUGS (23)
  1. A-HYDROCORT [Concomitant]
     Active Substance: HYDROCORTISONE SODIUM SUCCINATE
  2. KLOR-CON [Concomitant]
     Active Substance: POTASSIUM CHLORIDE
  3. METAMUCIL [Concomitant]
     Active Substance: PLANTAGO SEED
  4. LATANOPROST. [Concomitant]
     Active Substance: LATANOPROST
  5. PREDNISOLONE. [Concomitant]
     Active Substance: PREDNISOLONE
  6. PREVISION, PREVNAR [Concomitant]
  7. VITAMIN D3 [Concomitant]
     Active Substance: CHOLECALCIFEROL
  8. FIRMAGON [Concomitant]
     Active Substance: DEGARELIX ACETATE
  9. PNEUMOVAX 23 [Concomitant]
     Active Substance: PNEUMOCOCCAL VACCINE, POLYVALENT 23
  10. ABIRATERONE. [Suspect]
     Active Substance: ABIRATERONE ACETATE
     Indication: PROSTATE CANCER
     Route: 048
     Dates: start: 20200312, end: 20200521
  11. AMIODARONE [Concomitant]
     Active Substance: AMIODARONE
  12. FUROSEMIDE. [Concomitant]
     Active Substance: FUROSEMIDE
  13. PREDNISONE. [Suspect]
     Active Substance: PREDNISONE
     Indication: PROSTATE CANCER
     Route: 048
     Dates: start: 20200312, end: 20200521
  14. ASPIRIN. [Concomitant]
     Active Substance: ASPIRIN
  15. MELATONIN [Concomitant]
     Active Substance: MELATONIN
  16. MIRALAX [Concomitant]
     Active Substance: POLYETHYLENE GLYCOL 3350
  17. VENTOLIN HFA AER [Concomitant]
  18. COQ10 [Concomitant]
     Active Substance: UBIDECARENONE
  19. ECONAZOLE. [Concomitant]
     Active Substance: ECONAZOLE NITRATE
  20. ELIGARD [Concomitant]
     Active Substance: LEUPROLIDE ACETATE
  21. FLUZONE [Concomitant]
     Active Substance: INFLUENZA A VIRUS A/CALIFORNIA/7/2009 X-179A (H1N1) ANTIGEN (FORMALDEHYDE INACTIVATED)\INFLUENZA A VIRUS A/VICTORIA/210/2009 X-187 (H3N2) ANTIGEN (FORMALDEHYDE INACTIVATED)\INFLUENZA B VIRUS B/BRISBANE/60/2008 ANTIGEN (FORMALDEHYDE INACTIVATED)
  22. POT CHRORIDE [Concomitant]
  23. SIMVASTION, TIMOLOL MAL [Concomitant]

REACTIONS (1)
  - Death [None]

NARRATIVE: CASE EVENT DATE: 20200521
